FAERS Safety Report 4443968-X (Version None)
Quarter: 2004Q3

REPORT INFORMATION
  Report Type: 
  Country: None (occurrence: None)
  Receive Date: 20040729
  Receipt Date: 20040130
  Transmission Date: 20050211
  Serious: Yes (Hospitalization)
  Sender: FDA-Public Use
  Company Number: US-JNJFOC-20040200235

PATIENT
  Sex: Male

DRUGS (2)
  1. RISPERDAL CONSTA [Suspect]
     Indication: SCHIZOPHRENIA
     Dosage: INTRA-MUSCULAR
     Route: 030
     Dates: start: 20040113, end: 20040123
  2. . [Concomitant]

REACTIONS (2)
  - CONVULSION [None]
  - SCHIZOPHRENIA [None]
